FAERS Safety Report 6195921-6 (Version None)
Quarter: 2009Q2

REPORT INFORMATION
  Report Type: 
  Country: None (occurrence: None)
  Receive Date: 20090520
  Receipt Date: 20090512
  Transmission Date: 20091009
  Serious: Yes (Hospitalization)
  Sender: FDA-Public Use
  Company Number: FR-AVENTIS-200912599EU

PATIENT
  Age: 87 Year
  Sex: Female

DRUGS (10)
  1. FLUDEX                             /00340101/ [Suspect]
     Route: 048
     Dates: end: 20081203
  2. MONO-TILDIEM [Suspect]
     Route: 048
     Dates: end: 20081203
  3. CORDARONE [Suspect]
     Route: 048
     Dates: end: 20081203
  4. CORVASAL                           /00547101/ [Suspect]
     Route: 048
     Dates: end: 20081203
  5. TANAKAN                            /01003103/ [Suspect]
     Dosage: DOSE: UNK
     Route: 048
     Dates: end: 20081203
  6. VASTAREL NOS [Concomitant]
  7. LEVOTHYROX [Concomitant]
  8. ELISOR [Concomitant]
  9. DIFFU K [Concomitant]
  10. CARDIOCALM [Concomitant]

REACTIONS (2)
  - DRUG INTERACTION [None]
  - LOSS OF CONSCIOUSNESS [None]
